FAERS Safety Report 22125893 (Version 2)
Quarter: 2023Q2

REPORT INFORMATION
  Report Type: Spontaneous
  Country: US (occurrence: US)
  Receive Date: 20230322
  Receipt Date: 20230505
  Transmission Date: 20230721
  Serious: No
  Sender: FDA-Public Use
  Company Number: US-ViiV Healthcare Limited-93520

PATIENT
  Age: 28 Year
  Sex: Male

DRUGS (3)
  1. CABOTEGRAVIR [Suspect]
     Active Substance: CABOTEGRAVIR
     Indication: Product used for unknown indication
     Dosage: 600 MG
     Route: 030
  2. CABOTEGRAVIR [Suspect]
     Active Substance: CABOTEGRAVIR
  3. CABOTEGRAVIR [Suspect]
     Active Substance: CABOTEGRAVIR

REACTIONS (5)
  - Injection site nodule [Recovered/Resolved]
  - Pyrexia [Unknown]
  - Myalgia [Unknown]
  - Pain [Unknown]
  - Injection site mass [Unknown]
